FAERS Safety Report 14280066 (Version 6)
Quarter: 2018Q4

REPORT INFORMATION
  Report Type: Spontaneous
  Country: US (occurrence: US)
  Receive Date: 20171212
  Receipt Date: 20181227
  Transmission Date: 20190204
  Serious: Yes (Death, Hospitalization)
  Sender: FDA-Public Use
  Company Number: US-ACTELION-A-US2017-164133

PATIENT
  Age: 6 Month
  Sex: Female

DRUGS (9)
  1. LASIX [Concomitant]
     Active Substance: FUROSEMIDE
  2. ELECTROLYTES NOS [Concomitant]
     Active Substance: ELECTROLYTES NOS
  3. DIURIL [Concomitant]
     Active Substance: CHLOROTHIAZIDE
  4. SILDENAFIL. [Concomitant]
     Active Substance: SILDENAFIL
  5. TRACLEER [Suspect]
     Active Substance: BOSENTAN
     Indication: PULMONARY ARTERIAL HYPERTENSION
     Dosage: 6 MG, BID
     Route: 048
     Dates: start: 20171011
  6. TRACLEER [Suspect]
     Active Substance: BOSENTAN
     Dosage: 16.9 MG, BID
     Route: 048
     Dates: end: 20181017
  7. MIDAZOLAM [Concomitant]
     Active Substance: MIDAZOLAM HYDROCHLORIDE
  8. MULTIVITAMIN [Concomitant]
     Active Substance: VITAMINS
  9. REVATIO [Concomitant]
     Active Substance: SILDENAFIL CITRATE
     Dosage: 40 MG, TID
     Dates: start: 20180324, end: 20181017

REACTIONS (7)
  - Pulmonary arterial hypertension [Fatal]
  - Pulmonary vein stenosis [Fatal]
  - Disease progression [Fatal]
  - Hospitalisation [Unknown]
  - No adverse event [Unknown]
  - Disease complication [Fatal]
  - Product use issue [Unknown]

NARRATIVE: CASE EVENT DATE: 20171011
